FAERS Safety Report 6558319-4 (Version None)
Quarter: 2010Q1

REPORT INFORMATION
  Report Type: 
  Country: None (occurrence: None)
  Receive Date: 20100128
  Receipt Date: 20100128
  Transmission Date: 20100710
  Serious: Yes (Hospitalization, Disabling, Other)
  Sender: FDA-Public Use
  Company Number: None

PATIENT
  Age: 26 Year
  Sex: Female
  Weight: 81.6475 kg

DRUGS (5)
  1. PREDNISONE [Suspect]
     Indication: RHEUMATOID ARTHRITIS
     Dosage: 10 MG - 20 MG 2 PILLS, 4 PILLS, DAILY
     Dates: start: 20081101, end: 20090801
  2. PREDNISONE [Suspect]
     Indication: SYSTEMIC LUPUS ERYTHEMATOSUS
     Dosage: 10 MG - 20 MG 2 PILLS, 4 PILLS, DAILY
     Dates: start: 20081101, end: 20090801
  3. PREDNISONE [Suspect]
  4. PREDNISONE [Suspect]
  5. PREDNISONE [Suspect]

REACTIONS (10)
  - ABORTION SPONTANEOUS [None]
  - AMENORRHOEA [None]
  - BLOOD OESTROGEN DECREASED [None]
  - DRUG EXPOSURE DURING PREGNANCY [None]
  - ENDOMETRIOSIS [None]
  - NERVE INJURY [None]
  - OSTEOCHONDROSIS [None]
  - OSTEOPENIA [None]
  - UPPER LIMB FRACTURE [None]
  - WEIGHT INCREASED [None]
